FAERS Safety Report 21815047 (Version 1)
Quarter: 2023Q1

REPORT INFORMATION
  Report Type: Report from Study
  Country: US (occurrence: US)
  Receive Date: 20230104
  Receipt Date: 20230104
  Transmission Date: 20230417
  Serious: No
  Sender: FDA-Public Use
  Company Number: US-ABBVIE-4217583

PATIENT
  Sex: Male

DRUGS (1)
  1. SKYRIZI [Suspect]
     Active Substance: RISANKIZUMAB-RZAA
     Indication: Product used for unknown indication
     Route: 058

REACTIONS (6)
  - Chest discomfort [Unknown]
  - Fatigue [Unknown]
  - Muscular weakness [Unknown]
  - Arthralgia [Unknown]
  - Dyspnoea [Unknown]
  - Headache [Unknown]
